FAERS Safety Report 7463879-5 (Version None)
Quarter: 2011Q2

REPORT INFORMATION
  Report Type: 
  Country: None (occurrence: None)
  Receive Date: 20110506
  Receipt Date: 20110430
  Transmission Date: 20111010
  Serious: Yes (Other)
  Sender: FDA-Public Use
  Company Number: US-SANOFI-AVENTIS-2011SA026819

PATIENT
  Age: 72 Year
  Sex: Female

DRUGS (3)
  1. ANTIHYPERTENSIVES [Concomitant]
  2. OPTICLICK [Suspect]
     Indication: TYPE 2 DIABETES MELLITUS
     Dates: start: 20080101
  3. LANTUS [Suspect]
     Indication: TYPE 2 DIABETES MELLITUS
     Dosage: 13-40 UNITS DOSE:24 UNIT(S)
     Route: 058
     Dates: start: 20080101

REACTIONS (1)
  - MACULAR DEGENERATION [None]
